FAERS Safety Report 5731280-8 (Version None)
Quarter: 2008Q2

REPORT INFORMATION
  Report Type: 
  Country: None (occurrence: None)
  Receive Date: 20080505
  Receipt Date: 20080421
  Transmission Date: 20081010
  Serious: Yes (Death, Life-Threatening, Hospitalization, Disabling, Other)
  Sender: FDA-Public Use
  Company Number: STI-2008-01666

PATIENT
  Age: 67 Year
  Sex: Male

DRUGS (29)
  1. ERYTHROMYCIN [Suspect]
     Indication: LOWER RESPIRATORY TRACT INFECTION
  2. ACOMPLIA (20 MG) [Suspect]
     Indication: WEIGHT DECREASED
     Dosage: (1 IN 1 DAYS) ORAL
     Route: 048
  3. DOXYCYCLINE [Suspect]
     Dosage: ORAL
     Route: 048
  4. ALLOPURINOL [Concomitant]
  5. AMOXICILLIN (AMOXICILLIN) (500 MG) [Concomitant]
  6. ASPIRIN (A.P.C.) (75 MG) [Concomitant]
  7. ATORVASTATIN (ATORVASTATIN) (40 MG) [Concomitant]
  8. BUDESONIDE (BUDESONIDE) (100 UG) [Concomitant]
  9. CHLORHEXIDINE (CHLORHEXIDINE) (0.2 %) [Concomitant]
  10. CIALIS (TADALAFIL) (20 MG) [Concomitant]
  11. DAKTACORT (DAKTACORT) (1 DOSAGE FORM) [Concomitant]
  12. DIPROBASE (WHITE SOFT PARAFFIN) [Concomitant]
  13. DOUBLEBASE L (ISOPROPYL MYRISTATE) [Concomitant]
  14. DOXYCYCLINE (DOXYCYCLINE) (100 MG) [Concomitant]
  15. ERYTHROMYCIN (ERYTHROMYCIN) (250 MG) [Concomitant]
  16. FORMOTEROL (FORMOTEROL) (6 UG) [Concomitant]
  17. FORMOTEROL FUMARATE (FORMOTEROL FUMARATE) (6 UG) [Concomitant]
  18. FUROSEMIDE [Concomitant]
  19. GLIPIZIDE (GLIPIZIDE) (5 MG) [Concomitant]
  20. HYDROCHLOROTHIAZIDE [Concomitant]
  21. LANSOPRAZOLE (LANSOPRAZOLE) (30 MG) [Concomitant]
  22. LISINOPRIL [Concomitant]
  23. METFORMIN (METFORMIN) (500 MG) [Concomitant]
  24. MICONAZOLE (MICONAZOLE) (24 MG) [Concomitant]
  25. PREDNISOLONE (PREDNISOLONE) (5 MG) [Concomitant]
  26. RAMIPRIL (RAMIPRIL) (2.5 MG) [Concomitant]
  27. ROSIGLITAZONE (ROTIGLITAZONE) (2 MG) [Concomitant]
  28. SALAMOL (SALBUTAMOL SULFATE) (100 UG) [Concomitant]
  29. TIOTROPIUM BROMIDE (TIOTROPIUM BROMIDE) (18 UG) [Concomitant]

REACTIONS (13)
  - ANAEMIA [None]
  - CONFUSIONAL STATE [None]
  - DIARRHOEA [None]
  - DRUG INTERACTION [None]
  - EOSINOPHILIA [None]
  - HYPOTENSION [None]
  - MALAISE [None]
  - MUCOSAL INFLAMMATION [None]
  - ORAL INTAKE REDUCED [None]
  - PNEUMONIA FUNGAL [None]
  - RENAL FAILURE ACUTE [None]
  - STEVENS-JOHNSON SYNDROME [None]
  - TOXIC SHOCK SYNDROME [None]
